FAERS Safety Report 13189420 (Version 1)
Quarter: 2017Q1

REPORT INFORMATION
  Report Type: Spontaneous
  Country: FR (occurrence: FR)
  Receive Date: 20170206
  Receipt Date: 20170206
  Transmission Date: 20170428
  Serious: Yes (Hospitalization)
  Sender: FDA-Public Use
  Company Number: FR-LANNETT COMPANY, INC.-FR-2017LAN000444

PATIENT
  Age: 14 Year
  Sex: Female

DRUGS (4)
  1. CODEINE SULFATE. [Suspect]
     Active Substance: CODEINE SULFATE
     Indication: PRODUCT USED FOR UNKNOWN INDICATION
     Dosage: 300 ML, SINGLE [EUPHON SYRUP]
     Route: 048
  2. PROMETHAZINE HYDROCHLORIDE. [Suspect]
     Active Substance: PROMETHAZINE HYDROCHLORIDE
     Indication: PRODUCT USED FOR UNKNOWN INDICATION
     Dosage: 750 MG, SINGLE
     Route: 048
  3. ALCOHOL. [Concomitant]
     Active Substance: ALCOHOL
     Indication: PRODUCT USED FOR UNKNOWN INDICATION
     Dosage: UNK
     Route: 048
  4. CANNABIS [Concomitant]
     Active Substance: CANNABIS SATIVA SUBSP. INDICA TOP
     Indication: PRODUCT USED FOR UNKNOWN INDICATION
     Dosage: 1 CIGARETTE
     Route: 055

REACTIONS (17)
  - Consciousness fluctuating [Unknown]
  - Heart rate increased [Unknown]
  - Dry mouth [Unknown]
  - Sinus tachycardia [Unknown]
  - Delusion [Unknown]
  - Drug abuse [Unknown]
  - Toxicity to various agents [Unknown]
  - Anticholinergic syndrome [Unknown]
  - Aggression [Unknown]
  - Agitation [Unknown]
  - Delirium [Unknown]
  - Abdominal tenderness [Unknown]
  - Somnolence [Recovering/Resolving]
  - Hallucination, visual [Unknown]
  - Dry eye [Unknown]
  - Drug screen positive [Unknown]
  - Pupillary light reflex tests abnormal [Unknown]
